FAERS Safety Report 8035558-7 (Version None)
Quarter: 2012Q1

REPORT INFORMATION
  Report Type: 
  Country: None (occurrence: None)
  Receive Date: 20120111
  Receipt Date: 20120106
  Transmission Date: 20120608
  Serious: Yes (Hospitalization)
  Sender: FDA-Public Use
  Company Number: JP-JNJFOC-20111207084

PATIENT
  Sex: Male
  Weight: 66 kg

DRUGS (37)
  1. MECOBALAMIN [Concomitant]
     Indication: PAIN
     Route: 048
  2. MUCOSTA [Concomitant]
     Route: 048
  3. ZOLPIDEM [Concomitant]
     Route: 048
  4. SUNBAZON [Concomitant]
     Indication: PAIN
     Route: 048
  5. REBAMIPIDE [Concomitant]
     Indication: PROPHYLAXIS
     Route: 048
  6. GABEXATE MESILATE [Concomitant]
     Indication: PROPHYLAXIS
     Route: 042
     Dates: start: 20111215, end: 20111215
  7. DEXTROSE [Concomitant]
     Indication: PROPHYLAXIS
     Route: 042
     Dates: start: 20111215, end: 20111215
  8. MIDAZOLAM [Concomitant]
     Route: 042
     Dates: start: 20111215, end: 20111215
  9. AMLODIN OD [Concomitant]
     Route: 048
  10. MYONAL [Concomitant]
     Route: 048
  11. INFLUENZA HA VACCINE [Concomitant]
     Route: 058
     Dates: start: 20111115, end: 20111115
  12. SOLDEM 3A [Concomitant]
     Route: 042
     Dates: start: 20111212, end: 20111213
  13. PHYSIO [Concomitant]
     Route: 042
     Dates: start: 20111215, end: 20111216
  14. PENTAZOCINE LACTATE [Concomitant]
     Route: 042
     Dates: start: 20111215, end: 20111215
  15. MIRTAZAPINE [Concomitant]
     Indication: PAIN
     Route: 048
  16. LEVOFLOXACIN [Concomitant]
     Route: 047
     Dates: start: 20111028, end: 20111128
  17. RESTAMIN [Concomitant]
     Route: 003
     Dates: start: 20111108
  18. VITAMIN C [Concomitant]
     Route: 042
     Dates: start: 20111211, end: 20111215
  19. SULBACTAM CEFOPERAZONE [Concomitant]
     Route: 042
     Dates: start: 20111211, end: 20111217
  20. SOLDEM 1 [Concomitant]
     Route: 042
     Dates: start: 20111212, end: 20111213
  21. URSO 250 [Concomitant]
     Route: 048
     Dates: start: 20111220
  22. LOXONIN [Concomitant]
     Route: 048
  23. SULPIRIDE [Concomitant]
     Indication: PAIN
     Route: 048
  24. SOLULACT [Concomitant]
     Route: 042
     Dates: start: 20111211, end: 20111215
  25. VITAMEDIN [Concomitant]
     Route: 042
     Dates: start: 20111211, end: 20111215
  26. XYLOCAINE [Concomitant]
     Route: 049
     Dates: start: 20111215, end: 20111215
  27. ACETATED RINGER [Concomitant]
     Route: 042
     Dates: start: 20111211, end: 20111211
  28. FAMOTIDINE [Concomitant]
     Indication: PROPHYLAXIS
     Route: 042
     Dates: start: 20111212, end: 20111215
  29. FLUMAZENIL [Concomitant]
     Route: 042
     Dates: start: 20111215, end: 20111215
  30. FENTANYL [Suspect]
     Indication: PRODUCT USED FOR UNKNOWN INDICATION
     Dosage: 0.84 MG X 1 PER 1 DAY
     Route: 062
     Dates: start: 20111101, end: 20111214
  31. FLUOROMETHOLONE [Concomitant]
     Route: 047
     Dates: start: 20111028, end: 20111128
  32. LOXOPROFEN [Concomitant]
     Indication: PAIN
     Route: 048
  33. ATARAX [Concomitant]
     Route: 042
     Dates: start: 20111212, end: 20111215
  34. SCOPOLAMINE [Concomitant]
     Route: 030
     Dates: start: 20111215, end: 20111215
  35. FENTANYL-100 [Concomitant]
     Indication: PAIN
     Route: 062
     Dates: start: 20111214
  36. MAGNESIUM SULFATE [Concomitant]
     Indication: PROPHYLAXIS
     Route: 048
  37. CYMBALTA [Concomitant]
     Indication: PAIN
     Route: 048

REACTIONS (1)
  - CHOLANGITIS ACUTE [None]
